FAERS Safety Report 10869390 (Version 1)
Quarter: 2015Q1

REPORT INFORMATION
  Report Type: Report from Study
  Country: US (occurrence: US)
  Receive Date: 20150226
  Receipt Date: 20150226
  Transmission Date: 20150721
  Serious: Yes (Hospitalization)
  Sender: FDA-Public Use
  Company Number: US-AMGEN-USASL2015017009

PATIENT
  Age: 63 Year
  Sex: Female

DRUGS (1)
  1. ENBREL [Suspect]
     Active Substance: ETANERCEPT
     Indication: PSORIATIC ARTHROPATHY
     Dosage: 50 MG, QWK
     Route: 058

REACTIONS (7)
  - Secretion discharge [Unknown]
  - Cellulitis [Recovered/Resolved]
  - Lymph gland infection [Recovered/Resolved]
  - Chest pain [Recovered/Resolved]
  - Hypertension [Recovered/Resolved]
  - Skin disorder [Unknown]
  - Pruritus [Unknown]

NARRATIVE: CASE EVENT DATE: 2015
